FAERS Safety Report 18665936 (Version 1)
Quarter: 2020Q4

REPORT INFORMATION
  Report Type: Spontaneous
  Country: DE (occurrence: DE)
  Receive Date: 20201226
  Receipt Date: 20201226
  Transmission Date: 20210114
  Serious: Yes (Hospitalization)
  Sender: FDA-Public Use
  Company Number: DE-TEVA-2020-DE-1860916

PATIENT
  Age: 81 Year
  Sex: Male

DRUGS (8)
  1. DEKRISTOL 20000I.E. [Concomitant]
     Dosage: 20000 IE / WEEK, 1-0-0-0, UNIT DOSE : 1 DOSAGE FORMS
  2. PANTOPRAZOL [Concomitant]
     Active Substance: PANTOPRAZOLE SODIUM
     Dosage: 40 MG, AS NEEDED
  3. BISOPROLOL [Concomitant]
     Active Substance: BISOPROLOL
     Dosage: 10 MILLIGRAM DAILY; 1-0-0-0
  4. TORASEMID [Concomitant]
     Active Substance: TORSEMIDE
     Dosage: 5 MILLIGRAM DAILY; 1-0-0-0
  5. CANDESARTAN. [Concomitant]
     Active Substance: CANDESARTAN
     Dosage: 32 MILLIGRAM DAILY; 1-0-0-0
  6. CLOTRIMAZOL [Concomitant]
     Active Substance: CLOTRIMAZOLE
     Dosage: 2X
     Route: 003
  7. ASS 100 [Suspect]
     Active Substance: ASPIRIN
     Dosage: 100 MILLIGRAM DAILY;  1-0-0-0
     Route: 065
  8. DOXORUBICIN [Suspect]
     Active Substance: DOXORUBICIN
     Route: 065

REACTIONS (5)
  - Decreased appetite [Unknown]
  - Mobility decreased [Unknown]
  - Weight decreased [Unknown]
  - General physical health deterioration [Unknown]
  - Anaemia [Unknown]

NARRATIVE: CASE EVENT DATE: 2020
